FAERS Safety Report 21542029 (Version 1)
Quarter: 2022Q4

REPORT INFORMATION
  Report Type: Spontaneous
  Country: TT (occurrence: TT)
  Receive Date: 20221102
  Receipt Date: 20221102
  Transmission Date: 20230112
  Serious: Yes (Other)
  Sender: FDA-Public Use
  Company Number: TT-BAYER-2022P019385

PATIENT
  Sex: Female

DRUGS (1)
  1. STIVARGA [Suspect]
     Active Substance: REGORAFENIB
     Dosage: 3 WEEKS ON/ONE WEEK OFF
     Dates: start: 2022, end: 2022

REACTIONS (1)
  - Metastases to liver [None]
